FAERS Safety Report 9177280 (Version 2)
Quarter: 2013Q2

REPORT INFORMATION
  Report Type: Spontaneous
  Country: US (occurrence: US)
  Receive Date: 20130321
  Receipt Date: 20130509
  Transmission Date: 20140414
  Serious: Yes (Other)
  Sender: FDA-Public Use
  Company Number: US-PERRIGO-13US002637

PATIENT
  Age: 2 Year
  Sex: Female
  Weight: 13.61 kg

DRUGS (1)
  1. ACETAMINOPHEN CHERRY DYE FREE 32 MG/ML 590 [Suspect]
     Indication: PYREXIA
     Dosage: 5 ML, SINGLE
     Route: 048
     Dates: start: 20130305, end: 20130305

REACTIONS (3)
  - Febrile convulsion [Recovered/Resolved]
  - Condition aggravated [Recovered/Resolved]
  - Dyspnoea [Recovered/Resolved]
